FAERS Safety Report 19308732 (Version 1)
Quarter: 2021Q2

REPORT INFORMATION
  Report Type: Spontaneous
  Country: CN (occurrence: CN)
  Receive Date: 20210525
  Receipt Date: 20210525
  Transmission Date: 20210717
  Serious: Yes (Other)
  Sender: FDA-Public Use
  Company Number: CN-INCYTE CORPORATION-2021IN004568

PATIENT

DRUGS (3)
  1. JAKAVI [Suspect]
     Active Substance: RUXOLITINIB
     Dosage: 5 MG, BID
     Route: 048
  2. JAKAVI [Suspect]
     Active Substance: RUXOLITINIB
     Indication: PRIMARY MYELOFIBROSIS
     Dosage: 20 MG, BID
     Route: 048
     Dates: start: 201811, end: 20200922
  3. DECITABINE. [Concomitant]
     Active Substance: DECITABINE
     Indication: PRODUCT USED FOR UNKNOWN INDICATION
     Dosage: UNK (32X5 D)
     Route: 065

REACTIONS (6)
  - Asthenia [Recovering/Resolving]
  - Gastric ulcer [Recovering/Resolving]
  - Body temperature increased [Recovering/Resolving]
  - Melaena [Recovering/Resolving]
  - Abdominal discomfort [Unknown]
  - Haematemesis [Recovering/Resolving]

NARRATIVE: CASE EVENT DATE: 20200922
